FAERS Safety Report 5650984-9 (Version None)
Quarter: 2008Q1

REPORT INFORMATION
  Report Type: 
  Country: None (occurrence: None)
  Receive Date: 20080305
  Receipt Date: 20080226
  Transmission Date: 20080703
  Serious: Yes (Life-Threatening)
  Sender: FDA-Public Use
  Company Number: JP-GENENTECH-255673

PATIENT
  Sex: Female

DRUGS (13)
  1. RITUXAN [Suspect]
     Indication: NON-HODGKIN'S LYMPHOMA
     Dosage: 500 MG, UNK
     Route: 041
     Dates: start: 20070926
  2. PIRARUBICIN [Concomitant]
     Indication: DRUG USE FOR UNKNOWN INDICATION
     Dosage: 55 MG, UNK
     Route: 042
     Dates: start: 20070903
  3. ENDOXAN [Concomitant]
     Indication: DRUG USE FOR UNKNOWN INDICATION
     Dosage: 500 MG, UNK
     Route: 042
     Dates: start: 20070903, end: 20070904
  4. ONCOVIN [Concomitant]
     Indication: DRUG USE FOR UNKNOWN INDICATION
     Dosage: 1.8 MG, UNK
     Route: 042
     Dates: start: 20070903
  5. PREDONINE [Concomitant]
     Indication: DRUG USE FOR UNKNOWN INDICATION
     Dosage: 100 MG, UNK
     Route: 048
     Dates: start: 20070903, end: 20070907
  6. LOXONIN [Concomitant]
     Indication: PREMEDICATION
     Dates: start: 20070926
  7. POLARAMINE [Concomitant]
     Indication: PREMEDICATION
     Dates: start: 20070926
  8. BAKTAR [Concomitant]
     Indication: DRUG USE FOR UNKNOWN INDICATION
     Dosage: 1 TABLET, UNK
     Route: 048
     Dates: start: 20070903
  9. FLUCONAZOLE [Concomitant]
     Indication: DRUG USE FOR UNKNOWN INDICATION
     Dosage: 50 MG, X2
     Route: 048
     Dates: start: 20070903
  10. MUCOSTA [Concomitant]
     Indication: DRUG USE FOR UNKNOWN INDICATION
     Dosage: 100 MG, X3
     Route: 048
     Dates: start: 20070903
  11. ZYLORIC [Concomitant]
     Indication: DRUG USE FOR UNKNOWN INDICATION
     Dosage: 100 MG, X3
     Route: 048
     Dates: start: 20070903
  12. PARIET [Concomitant]
     Indication: DRUG USE FOR UNKNOWN INDICATION
     Dosage: 10 MG, UNK
     Route: 048
     Dates: start: 20070903
  13. MAGNESIUM OXIDE [Concomitant]
     Indication: DRUG USE FOR UNKNOWN INDICATION
     Dosage: 330 MG, UNK
     Route: 048
     Dates: start: 20070903

REACTIONS (2)
  - DISSEMINATED INTRAVASCULAR COAGULATION [None]
  - INFUSION RELATED REACTION [None]
